FAERS Safety Report 22601017 (Version 1)
Quarter: 2023Q2

REPORT INFORMATION
  Report Type: Spontaneous
  Country: US (occurrence: US)
  Receive Date: 20230614
  Receipt Date: 20230614
  Transmission Date: 20230722
  Serious: Yes (Other)
  Sender: FDA-Public Use
  Company Number: US-002147023-NVSC2023US134333

PATIENT
  Age: 63 Year
  Sex: Female

DRUGS (2)
  1. RIBAVIRIN [Suspect]
     Active Substance: RIBAVIRIN
     Indication: Hepatitis E
     Dosage: 1200 MG, QD (600 MG TWICE PER DAY)
     Route: 048
  2. RIBAVIRIN [Suspect]
     Active Substance: RIBAVIRIN
     Dosage: 1000 MG, QD (DOSE ADJUSTMENT ON WEEK 7)
     Route: 048

REACTIONS (2)
  - Haemolytic anaemia [Unknown]
  - Product use in unapproved indication [Unknown]
